FAERS Safety Report 9916319 (Version 1)
Quarter: 2014Q1

REPORT INFORMATION
  Report Type: Spontaneous
  Country: US (occurrence: US)
  Receive Date: 20140221
  Receipt Date: 20140221
  Transmission Date: 20141002
  Serious: Yes (Other)
  Sender: FDA-Public Use
  Company Number: PHEH2014US003215

PATIENT
  Sex: Male

DRUGS (12)
  1. NEORAL [Suspect]
     Indication: RENAL TRANSPLANT
     Dosage: 350 MG,
     Dates: start: 201205
  2. MYFORTIC [Concomitant]
     Indication: RENAL TRANSPLANT
     Dosage: 360 MG, UNK
     Dates: start: 20120828
  3. SIMVASTATIN [Concomitant]
     Dosage: 40 MG, UNK
  4. AMLODIPINE [Concomitant]
     Dosage: 10 MG, UNK
  5. PREDNISONE [Concomitant]
     Dosage: 5 MG, UNK
  6. SPIRONOLACTON [Concomitant]
     Dosage: 50 MG, UNK
  7. SENSIPAR [Concomitant]
     Dosage: 60 MG, UNK
  8. FUROSEMIDE [Concomitant]
     Dosage: 40 MG, UNK
  9. RENAGEL [Concomitant]
     Dosage: 80 MG, UNK
  10. METOPROLOL [Concomitant]
     Dosage: 100 MG, UNK
  11. LANTUS [Concomitant]
     Indication: DIABETES MELLITUS
     Dosage: UNK UKN, UNK
  12. HUMALOG [Concomitant]
     Indication: DIABETES MELLITUS
     Dosage: UNK UKN, UNK

REACTIONS (2)
  - Urinary tract obstruction [Unknown]
  - Renal failure [Unknown]
